FAERS Safety Report 9699661 (Version 2)
Quarter: 2013Q4

REPORT INFORMATION
  Report Type: Spontaneous
  Country: US (occurrence: US)
  Receive Date: 20131120
  Receipt Date: 20131212
  Transmission Date: 20140711
  Serious: No
  Sender: FDA-Public Use
  Company Number: US-TEVA-371317USA

PATIENT
  Age: 25 Year
  Sex: Female
  Weight: 48.12 kg

DRUGS (11)
  1. PARAGARD 380A [Suspect]
     Indication: CONTRACEPTION
     Route: 015
     Dates: start: 20111004
  2. LYRICA [Concomitant]
  3. KEFLEX [Concomitant]
     Indication: CYSTITIS INTERSTITIAL
  4. BACTROBAN [Concomitant]
     Indication: CYSTITIS INTERSTITIAL
  5. ANAPROX [Concomitant]
  6. PROBIOTICS [Concomitant]
  7. VITAMIN D [Concomitant]
  8. VITAMIN B12 [Concomitant]
  9. PREGNENOLONE [Concomitant]
  10. DHEA [Concomitant]
  11. ELMIRON [Concomitant]
     Dates: start: 201110, end: 201112

REACTIONS (2)
  - Metrorrhagia [Recovered/Resolved]
  - Anaemia [Recovered/Resolved]
